FAERS Safety Report 7462772-1 (Version None)
Quarter: 2011Q2

REPORT INFORMATION
  Report Type: 
  Country: None (occurrence: None)
  Receive Date: 20110506
  Receipt Date: 20110503
  Transmission Date: 20111010
  Serious: Yes (Life-Threatening)
  Sender: FDA-Public Use
  Company Number: DE-PFIZER INC-2010169056

PATIENT
  Age: 7 Year
  Sex: Female
  Weight: 17.5 kg

DRUGS (4)
  1. TRACLEER [Suspect]
     Indication: PULMONARY ARTERIAL HYPERTENSION
     Dosage: 62.5 MG, UNK
     Dates: start: 20090801, end: 20101001
  2. MARCUMAR [Concomitant]
     Indication: PULMONARY ARTERIAL HYPERTENSION
     Dosage: AS NEEDED ACCORDING TO INR
     Dates: start: 20090701, end: 20101201
  3. REVATIO [Suspect]
     Indication: PULMONARY ARTERIAL HYPERTENSION
     Dosage: 20 MG, 2X/DAY
     Route: 048
     Dates: start: 20090701
  4. NORVASC [Concomitant]
     Indication: PULMONARY ARTERIAL HYPERTENSION
     Dosage: 8 MG, UNK
     Route: 048
     Dates: start: 20090701

REACTIONS (1)
  - AUTOIMMUNE HEPATITIS [None]
